FAERS Safety Report 7040145-3 (Version None)
Quarter: 2010Q4

REPORT INFORMATION
  Report Type: 
  Country: None (occurrence: None)
  Receive Date: 20101012
  Receipt Date: 20101005
  Transmission Date: 20110411
  Serious: Yes (Hospitalization, Other)
  Sender: FDA-Public Use
  Company Number: PHHO2010JP09281

PATIENT
  Sex: Female
  Weight: 65 kg

DRUGS (8)
  1. CGS 20267 T30748+TAB [Suspect]
     Indication: BREAST CANCER
     Dosage: 2.5 MG, UNK
     Route: 048
     Dates: start: 20070517
  2. LENDORMIN [Concomitant]
     Dosage: UNK
     Dates: start: 20070129
  3. METHYCOBAL [Concomitant]
  4. KETOPROFEN [Concomitant]
  5. LOXONIN [Concomitant]
  6. HYALEIN [Concomitant]
  7. SANCOBA [Concomitant]
  8. RINDERON [Concomitant]

REACTIONS (3)
  - COLPORRHAPHY [None]
  - CYSTOCELE [None]
  - POSTOPERATIVE WOUND INFECTION [None]
